FAERS Safety Report 4854603-0 (Version None)
Quarter: 2005Q4

REPORT INFORMATION
  Report Type: 
  Country: None (occurrence: None)
  Receive Date: 20051213
  Receipt Date: 20051208
  Transmission Date: 20060501
  Serious: Yes (Other)
  Sender: FDA-Public Use
  Company Number: HQWYE916509DEC05

PATIENT
  Age: 80 Year
  Sex: Female

DRUGS (1)
  1. PANTOPRAZOLE SODIUM [Suspect]
     Route: 048
     Dates: start: 20051101, end: 20051101

REACTIONS (4)
  - HEADACHE [None]
  - MENIERE'S DISEASE [None]
  - VERTIGO [None]
  - VOMITING [None]
